FAERS Safety Report 23378657 (Version 1)
Quarter: 2024Q1

REPORT INFORMATION
  Report Type: Spontaneous
  Country: US (occurrence: US)
  Receive Date: 20240108
  Receipt Date: 20240108
  Transmission Date: 20240409
  Serious: Yes (Death)
  Sender: FDA-Public Use
  Company Number: US-AMNEAL PHARMACEUTICALS-2023-AMRX-04639

PATIENT
  Age: 76 Year
  Sex: Male

DRUGS (3)
  1. RYTARY [Suspect]
     Active Substance: CARBIDOPA\LEVODOPA
     Indication: Product used for unknown indication
     Dosage: 1 CAPSULE BY MOUTH FOUR TIMES A DAY OF 48.75-195 AND 61.25-245 MG
     Route: 048
  2. RYTARY [Suspect]
     Active Substance: CARBIDOPA\LEVODOPA
     Dosage: 61.25-245 MG (01ST AND 03RD DOSE) AND 48.75-195 (02ND AND 04TH DOSE MG) 01 CAPSULE  04 TIMES DAILY
     Route: 048
     Dates: start: 20231019
  3. RYTARY [Suspect]
     Active Substance: CARBIDOPA\LEVODOPA
     Dosage: 01 CAPSULES, 4X/DAY
     Route: 048

REACTIONS (1)
  - Adverse event [Fatal]

NARRATIVE: CASE EVENT DATE: 20231225
